FAERS Safety Report 8826424 (Version 1)
Quarter: 2012Q4

REPORT INFORMATION
  Report Type: 
  Country: JP (occurrence: JP)
  Receive Date: 20121005
  Receipt Date: 20121005
  Transmission Date: 20130627
  Serious: Yes (Hospitalization)
  Sender: FDA-Public Use
  Company Number: JP-AMGEN-JPNSP2012062883

PATIENT
  Sex: Male

DRUGS (1)
  1. VECTIBIX [Suspect]
     Indication: LARGE INTESTINE CARCINOMA
     Dosage: UNK
     Route: 041

REACTIONS (1)
  - Road traffic accident [Unknown]
